FAERS Safety Report 16564164 (Version 1)
Quarter: 2019Q3

REPORT INFORMATION
  Report Type: Spontaneous
  Country: IT (occurrence: IT)
  Receive Date: 20190712
  Receipt Date: 20190712
  Transmission Date: 20191004
  Serious: Yes (Other)
  Sender: FDA-Public Use
  Company Number: IT-TEVA-2019-IT-1075667

PATIENT
  Age: 75 Year
  Sex: Male

DRUGS (5)
  1. TENORMIN [Concomitant]
     Active Substance: ATENOLOL
  2. CISPLATINO TEVA [Suspect]
     Active Substance: CISPLATIN
     Indication: TRANSITIONAL CELL CARCINOMA
     Route: 042
     Dates: start: 20180809, end: 20180809
  3. ADALAT [Concomitant]
     Active Substance: NIFEDIPINE
  4. CARDURA [Concomitant]
     Active Substance: DOXAZOSIN MESYLATE
  5. GEMCITABINE. [Suspect]
     Active Substance: GEMCITABINE
     Indication: TRANSITIONAL CELL CARCINOMA
     Route: 042
     Dates: start: 20180809, end: 20180809

REACTIONS (1)
  - Haematuria [Recovering/Resolving]

NARRATIVE: CASE EVENT DATE: 20180810
